FAERS Safety Report 18969485 (Version 1)
Quarter: 2021Q1

REPORT INFORMATION
  Report Type: Report from Study
  Country: GR (occurrence: GR)
  Receive Date: 20210304
  Receipt Date: 20210304
  Transmission Date: 20210420
  Serious: Yes (Death, Other)
  Sender: FDA-Public Use
  Company Number: GR-IPSEN BIOPHARMACEUTICALS, INC.-2021-05445

PATIENT

DRUGS (2)
  1. SOMATULINE AUTOGEL [Suspect]
     Active Substance: LANREOTIDE ACETATE
     Indication: GASTROENTEROPANCREATIC NEUROENDOCRINE TUMOUR DISEASE
     Route: 065
  2. SOMATULINE AUTOGEL [Suspect]
     Active Substance: LANREOTIDE ACETATE
     Dosage: EVERY 3 OR 2 WEEKS
     Route: 065

REACTIONS (5)
  - Glucose tolerance impaired [Unknown]
  - Diabetes mellitus [Unknown]
  - Cholangitis [Fatal]
  - Disease progression [Unknown]
  - Off label use [Unknown]
